FAERS Safety Report 25103990 (Version 1)
Quarter: 2025Q1

REPORT INFORMATION
  Report Type: Report from Study
  Country: IE (occurrence: IE)
  Receive Date: 20250321
  Receipt Date: 20250321
  Transmission Date: 20250408
  Serious: No
  Sender: TAKEDA
  Company Number: IE-TAKEDA-2020TUS052171

PATIENT
  Age: 75 Year
  Sex: Male

DRUGS (2)
  1. HUMAN IMMUNOGLOBULIN G\HYALURONIDASE RECOMBINANT HUMAN [Suspect]
     Active Substance: HUMAN IMMUNOGLOBULIN G\HYALURONIDASE (HUMAN RECOMBINANT)
     Indication: Chronic lymphocytic leukaemia
  2. HUMAN IMMUNOGLOBULIN G\HYALURONIDASE RECOMBINANT HUMAN [Suspect]
     Active Substance: HUMAN IMMUNOGLOBULIN G\HYALURONIDASE (HUMAN RECOMBINANT)
     Dosage: 35 GRAM, Q4WEEKS

REACTIONS (6)
  - Infusion site erythema [Recovered/Resolved]
  - Pharyngeal swelling [Unknown]
  - Tenderness [Unknown]
  - Device infusion issue [Recovered/Resolved]
  - Product use in unapproved indication [Unknown]
  - Swelling [Unknown]

NARRATIVE: CASE EVENT DATE: 20201116
